FAERS Safety Report 20299318 (Version 1)
Quarter: 2022Q1

REPORT INFORMATION
  Report Type: Spontaneous
  Country: US (occurrence: None)
  Receive Date: 20220104
  Receipt Date: 20220104
  Transmission Date: 20220424
  Serious: Yes (Other)
  Sender: FDA-Public Use
  Company Number: None

PATIENT
  Age: 40 Year
  Sex: Male
  Weight: 83.25 kg

DRUGS (2)
  1. BUPRENORPHINE HYDROCHLORIDE\NALOXONE HYDROCHLORIDE [Suspect]
     Active Substance: BUPRENORPHINE HYDROCHLORIDE\NALOXONE HYDROCHLORIDE
     Dosage: FREQUENCY : TWICE A DAY;?
     Route: 060
     Dates: start: 20211018
  2. buprenorphine 8 mg-naloxone 2 mg [Concomitant]
     Dates: start: 20211018

REACTIONS (2)
  - Product solubility abnormal [None]
  - Drug level below therapeutic [None]

NARRATIVE: CASE EVENT DATE: 20211110
